FAERS Safety Report 5992947-X (Version None)
Quarter: 2008Q4

REPORT INFORMATION
  Report Type: 
  Country: None (occurrence: None)
  Receive Date: 20081210
  Receipt Date: 20081201
  Transmission Date: 20090506
  Serious: Yes (Hospitalization)
  Sender: FDA-Public Use
  Company Number: GXKR2008US11453

PATIENT
  Age: 56 Year
  Sex: Male

DRUGS (3)
  1. AZATHIOPRINE [Suspect]
     Indication: IMMUNOSUPPRESSION
     Dosage: 200 MG/DAY
  2. PREDNISONE [Suspect]
     Indication: IMMUNOSUPPRESSION
     Dosage: 10 MG/DAY
  3. TACROLIMUS [Suspect]
     Indication: IMMUNOSUPPRESSION
     Dosage: 3 MG, BID; 0.5 MG, BIW

REACTIONS (10)
  - CLOSTRIDIUM DIFFICILE COLITIS [None]
  - DIFFUSE LARGE B-CELL LYMPHOMA [None]
  - DIVERTICULAR PERFORATION [None]
  - DIVERTICULITIS [None]
  - EPSTEIN-BARR VIRUS ASSOCIATED LYMPHOPROLIFERATIVE DISORDER [None]
  - KLEBSIELLA SEPSIS [None]
  - LUNG NEOPLASM [None]
  - LYMPHOPROLIFERATIVE DISORDER [None]
  - PAIN [None]
  - TRANSPLANT REJECTION [None]
